FAERS Safety Report 17717962 (Version 1)
Quarter: 2020Q2

REPORT INFORMATION
  Report Type: Report from Study
  Country: US (occurrence: US)
  Receive Date: 20200428
  Receipt Date: 20200428
  Transmission Date: 20200714
  Serious: No
  Sender: FDA-Public Use
  Company Number: NVSC2020US113224

PATIENT
  Age: 35 Year
  Sex: Female

DRUGS (1)
  1. LIF606 (LIFITEGRAST) [Suspect]
     Active Substance: LIFITEGRAST
     Indication: DRY EYE
     Dosage: 1 GTT, BID (1DROP EACH EYE)
     Route: 065

REACTIONS (1)
  - Product dose omission [Unknown]
